FAERS Safety Report 9777761 (Version 4)
Quarter: 2014Q2

REPORT INFORMATION
  Report Type: Spontaneous
  Country: US (occurrence: US)
  Receive Date: 20131223
  Receipt Date: 20140410
  Transmission Date: 20141212
  Serious: Yes (Hospitalization, Other)
  Sender: FDA-Public Use
  Company Number: US-BIOGENIDEC-2013BI122066

PATIENT
  Age: 66 Year
  Sex: Female
  Weight: 140 kg

DRUGS (1)
  1. TYSABRI [Suspect]
     Indication: MULTIPLE SCLEROSIS
     Route: 042
     Dates: start: 20060201

REACTIONS (14)
  - Stag horn calculus [Not Recovered/Not Resolved]
  - Urosepsis [Recovered/Resolved]
  - Urinary tract infection [Recovered/Resolved]
  - Fatigue [Not Recovered/Not Resolved]
  - Hypoxia [Unknown]
  - Pyelonephritis [Unknown]
  - Pyrexia [Unknown]
  - Leukocytosis [Recovered/Resolved]
  - Atelectasis [Unknown]
  - Cardiac arrest [Recovered/Resolved]
  - Fall [Recovered/Resolved]
  - H1N1 influenza [Unknown]
  - Renal hypertrophy [Not Recovered/Not Resolved]
  - Bladder disorder [Unknown]
